FAERS Safety Report 17440173 (Version 1)
Quarter: 2020Q1

REPORT INFORMATION
  Report Type: Spontaneous
  Country: PT (occurrence: PT)
  Receive Date: 20200220
  Receipt Date: 20200220
  Transmission Date: 20200409
  Serious: Yes (Hospitalization, Other)
  Sender: FDA-Public Use
  Company Number: PHHY2018PT130077

PATIENT
  Age: 78 Year
  Sex: Male

DRUGS (1)
  1. CIPROFLOXACIN. [Suspect]
     Active Substance: CIPROFLOXACIN
     Indication: URINARY TRACT INFECTION
     Dosage: UNK
     Route: 065

REACTIONS (12)
  - Rash macular [Recovering/Resolving]
  - Pyrexia [Recovered/Resolved]
  - Fatigue [Recovered/Resolved]
  - Rash [Recovering/Resolving]
  - Mouth ulceration [Recovered/Resolved]
  - Rash maculo-papular [Recovered/Resolved]
  - Toxic epidermal necrolysis [Recovered/Resolved]
  - Rash pruritic [Recovered/Resolved]
  - Cough [Recovered/Resolved]
  - Pharyngeal erythema [Recovered/Resolved]
  - Stevens-Johnson syndrome [Recovered/Resolved]
  - Odynophagia [Recovered/Resolved]
